FAERS Safety Report 6018797-6 (Version None)
Quarter: 2008Q4

REPORT INFORMATION
  Report Type: 
  Country: None (occurrence: None)
  Receive Date: 20081222
  Receipt Date: 20081205
  Transmission Date: 20090506
  Serious: Yes (Death, Hospitalization)
  Sender: FDA-Public Use
  Company Number: KV200800988

PATIENT
  Age: 83 Year
  Sex: Male
  Weight: 72.6 kg

DRUGS (4)
  1. ISOSORBIDE MONONITRATE [Suspect]
     Indication: ECHOCARDIOGRAM
     Dosage: ORAL
     Route: 048
     Dates: start: 20080301
  2. ZOCOR [Concomitant]
  3. COUMADIN [Concomitant]
  4. SEVERAL UNSPECIFIED MEDICATION [Concomitant]

REACTIONS (3)
  - CARDIAC ARREST [None]
  - ECHOCARDIOGRAM ABNORMAL [None]
  - PRODUCT QUALITY ISSUE [None]
